FAERS Safety Report 9631187 (Version 1)
Quarter: 2013Q4

REPORT INFORMATION
  Report Type: Spontaneous
  Country: US (occurrence: None)
  Receive Date: 20131016
  Receipt Date: 20131016
  Transmission Date: 20140711
  Serious: Yes (Death)
  Sender: FDA-Public Use
  Company Number: None

PATIENT
  Sex: Female

DRUGS (2)
  1. TEMOZOLOMIDE [Suspect]
     Indication: MALIGNANT MELANOMA
     Dosage: 1 CAP DAILY, ORAL
     Route: 048
     Dates: start: 20130916, end: 20131007
  2. TEMOZOLOMIDE [Suspect]
     Indication: MALIGNANT MELANOMA
     Dosage: 1 CAP
     Route: 048
     Dates: start: 20130916, end: 20131007

REACTIONS (2)
  - Disease progression [None]
  - Unevaluable event [None]
